FAERS Safety Report 6084523-8 (Version None)
Quarter: 2009Q1

REPORT INFORMATION
  Report Type: 
  Country: None (occurrence: None)
  Receive Date: 20090219
  Receipt Date: 20090206
  Transmission Date: 20090719
  Serious: Yes (Hospitalization)
  Sender: FDA-Public Use
  Company Number: JP-PFIZER INC-2009166933

PATIENT

DRUGS (2)
  1. DISOPYRAMIDE AND DISOPYRAMIDE PHOSPHATE [Suspect]
     Indication: ATRIAL FIBRILLATION
     Dosage: UNK
  2. GLIMEPIRIDE [Interacting]
     Indication: TYPE 2 DIABETES MELLITUS

REACTIONS (3)
  - HYPOGLYCAEMIA [None]
  - LOSS OF CONSCIOUSNESS [None]
  - POTENTIATING DRUG INTERACTION [None]
